FAERS Safety Report 10923210 (Version 3)
Quarter: 2015Q3

REPORT INFORMATION
  Report Type: Spontaneous
  Country: US (occurrence: US)
  Receive Date: 20150317
  Receipt Date: 20150728
  Transmission Date: 20151125
  Serious: Yes (Other)
  Sender: FDA-Public Use
  Company Number: US-BAYER-2015-044725

PATIENT
  Age: 21 Year
  Sex: Female

DRUGS (2)
  1. MIRENA [Suspect]
     Active Substance: LEVONORGESTREL
     Indication: CONTRACEPTION
     Dosage: 20 MCG/24HR, CONT
     Route: 015
     Dates: start: 20141218, end: 20150310
  2. MIRENA [Suspect]
     Active Substance: LEVONORGESTREL
     Indication: CONTRACEPTION
     Dosage: 20 MCG/24HR, CONT
     Route: 015
     Dates: start: 20150317, end: 20150701

REACTIONS (6)
  - Device expulsion [None]
  - Abdominal pain lower [None]
  - Genital haemorrhage [None]
  - Abdominal pain lower [None]
  - Genital haemorrhage [None]
  - Device dislocation [None]

NARRATIVE: CASE EVENT DATE: 2015
